FAERS Safety Report 6430857-4 (Version None)
Quarter: 2009Q4

REPORT INFORMATION
  Report Type: 
  Country: None (occurrence: None)
  Receive Date: 20091106
  Receipt Date: 20091102
  Transmission Date: 20100525
  Serious: Yes (Hospitalization)
  Sender: FDA-Public Use
  Company Number: DE-MERCK-0911DEU00008

PATIENT
  Sex: Male

DRUGS (2)
  1. VYTORIN [Suspect]
     Route: 048
  2. QUETIAPINE FUMARATE [Suspect]
     Route: 048

REACTIONS (4)
  - ADVERSE EVENT [None]
  - DRUG INTERACTION [None]
  - HOSPITALISATION [None]
  - RHABDOMYOLYSIS [None]
